FAERS Safety Report 7598643-X (Version None)
Quarter: 2011Q3

REPORT INFORMATION
  Report Type: 
  Country: None (occurrence: None)
  Receive Date: 20110711
  Receipt Date: 20110705
  Transmission Date: 20111222
  Serious: Yes (Other)
  Sender: FDA-Public Use
  Company Number: US-BRISTOL-MYERS SQUIBB COMPANY-15876121

PATIENT
  Age: 61 Year
  Sex: Male
  Weight: 113 kg

DRUGS (1)
  1. YERVOY [Suspect]

REACTIONS (1)
  - SPINAL FRACTURE [None]
